FAERS Safety Report 18180490 (Version 1)
Quarter: 2020Q3

REPORT INFORMATION
  Report Type: Spontaneous
  Country: US (occurrence: US)
  Receive Date: 20200821
  Receipt Date: 20200821
  Transmission Date: 20201103
  Serious: Yes (Death, Other)
  Sender: FDA-Public Use
  Company Number: US-PFIZER INC-2019558702

PATIENT
  Age: 77 Year

DRUGS (1)
  1. CELEBREX [Suspect]
     Active Substance: CELECOXIB
     Dosage: 200 MG, DAILY
     Route: 048
     Dates: start: 20191220

REACTIONS (1)
  - Death [Fatal]

NARRATIVE: CASE EVENT DATE: 2020
